FAERS Safety Report 25119709 (Version 1)
Quarter: 2025Q1

REPORT INFORMATION
  Report Type: Spontaneous
  Country: CA (occurrence: CA)
  Receive Date: 20250325
  Receipt Date: 20250325
  Transmission Date: 20250409
  Serious: Yes (Other)
  Sender: GALDERMA
  Company Number: CA-GALDERMA-CA2024005874

PATIENT

DRUGS (5)
  1. CLOBETASOL PROPIONATE [Suspect]
     Active Substance: CLOBETASOL PROPIONATE
     Indication: Pemphigoid
     Route: 065
  2. PREDNISONE [Concomitant]
     Active Substance: PREDNISONE
     Indication: Pemphigoid
     Route: 065
  3. PREDNISONE [Concomitant]
     Active Substance: PREDNISONE
     Route: 065
  4. DUPILUMAB [Concomitant]
     Active Substance: DUPILUMAB
     Indication: Pemphigoid
     Route: 065
  5. DUPILUMAB [Concomitant]
     Active Substance: DUPILUMAB
     Route: 058

REACTIONS (3)
  - Diabetes mellitus [Unknown]
  - Drug ineffective for unapproved indication [Recovered/Resolved]
  - Intentional product use issue [Recovered/Resolved]
